FAERS Safety Report 8785098 (Version 1)
Quarter: 2012Q4

REPORT INFORMATION
  Report Type: Spontaneous
  Country: US (occurrence: None)
  Receive Date: 20120831
  Receipt Date: 20120831
  Transmission Date: 20130627
  Serious: Yes (Death)
  Sender: FDA-Public Use
  Company Number: ENTC2012-0387

PATIENT
  Sex: Female

DRUGS (1)
  1. STALEVO(LEVOOOPA, CARBIOOPA, ENTACAPONE [Suspect]
     Indication: PARKINSON^S DISEASE

REACTIONS (1)
  - Death [None]
